FAERS Safety Report 12874317 (Version 1)
Quarter: 2016Q4

REPORT INFORMATION
  Report Type: Spontaneous
  Country: FR (occurrence: FR)
  Receive Date: 20161021
  Receipt Date: 20161021
  Transmission Date: 20170207
  Serious: Yes (Hospitalization, Other)
  Sender: FDA-Public Use
  Company Number: FR-PFIZER INC-2016491410

PATIENT
  Age: 62 Year
  Sex: Male

DRUGS (2)
  1. EFFEXOR LP [Suspect]
     Active Substance: VENLAFAXINE HYDROCHLORIDE
     Dosage: 450 MG (6 CAPSULES OF 75MG), DAILY
     Dates: start: 200607
  2. EFFEXOR LP [Suspect]
     Active Substance: VENLAFAXINE HYDROCHLORIDE
     Dosage: 300 MG (2 CAPSULES OF 150MG), DAILY
     Dates: start: 201606

REACTIONS (24)
  - Urinary incontinence [Unknown]
  - Rhabdomyolysis [Unknown]
  - Tinnitus [Unknown]
  - Blood urine present [Unknown]
  - Blood cholesterol increased [Unknown]
  - Arthralgia [Unknown]
  - Drug dependence [Unknown]
  - Dental caries [Unknown]
  - Decreased appetite [Unknown]
  - Photophobia [Unknown]
  - Intentional overdose [Unknown]
  - Crying [Unknown]
  - Spinal disorder [Unknown]
  - Erectile dysfunction [Unknown]
  - Osteoarthritis [Unknown]
  - Insomnia [Unknown]
  - Weight increased [Unknown]
  - Constipation [Unknown]
  - Diarrhoea [Unknown]
  - Feeling abnormal [Unknown]
  - Pruritus [Unknown]
  - Loss of libido [Unknown]
  - Diabetes mellitus [Unknown]
  - Metabolic disorder [Unknown]
